FAERS Safety Report 5487198-1 (Version None)
Quarter: 2007Q4

REPORT INFORMATION
  Report Type: 
  Country: None (occurrence: None)
  Receive Date: 20071016
  Receipt Date: 20071004
  Transmission Date: 20080405
  Serious: Yes (Hospitalization)
  Sender: FDA-Public Use
  Company Number: BR-ELI_LILLY_AND_COMPANY-BR200710001121

PATIENT
  Sex: Female
  Weight: 70 kg

DRUGS (5)
  1. CYMBALTA [Suspect]
     Indication: BIPOLAR DISORDER
     Dosage: 60 MG, UNKNOWN
     Route: 048
     Dates: start: 20070401
  2. CYMBALTA [Suspect]
     Dosage: 30 MG, OTHER
     Route: 048
  3. ALPRAZOLAM [Concomitant]
     Indication: BIPOLAR DISORDER
     Dosage: 1 MG, 2/D
     Route: 065
  4. OLCADIL [Concomitant]
     Indication: BIPOLAR DISORDER
     Dosage: 2 MG, 3/D
     Route: 065
  5. STELAZINE [Concomitant]
     Indication: BIPOLAR DISORDER
     Dosage: 2.5 MG, DAILY (1/D)
     Route: 065

REACTIONS (6)
  - AMNESIA [None]
  - DEPRESSED MOOD [None]
  - EUPHORIC MOOD [None]
  - HOSPITALISATION [None]
  - MALAISE [None]
  - SUICIDE ATTEMPT [None]
